FAERS Safety Report 25961572 (Version 1)
Quarter: 2025Q4

REPORT INFORMATION
  Report Type: Report from Study
  Country: US (occurrence: US)
  Receive Date: 20251027
  Receipt Date: 20251027
  Transmission Date: 20260118
  Serious: No
  Sender: LEO PHARM
  Company Number: US-LEO Pharma-383611

PATIENT
  Age: 55 Year
  Sex: Female

DRUGS (1)
  1. ANZUPGO [Suspect]
     Active Substance: DELGOCITINIB
     Indication: Dermatitis
     Dosage: APPLY A THIN LAYER
     Dates: start: 20251001, end: 20251003

REACTIONS (3)
  - Drug ineffective [Unknown]
  - Dermatitis [Unknown]
  - Product use in unapproved indication [Unknown]
